FAERS Safety Report 9763326 (Version 1)
Quarter: 2013Q4

REPORT INFORMATION
  Report Type: Spontaneous
  Country: US (occurrence: US)
  Receive Date: 20131216
  Receipt Date: 20131216
  Transmission Date: 20140711
  Serious: No
  Sender: FDA-Public Use
  Company Number: US-BIOGENIDEC-2013BI104427

PATIENT
  Age: 66 Year
  Sex: Female

DRUGS (19)
  1. TECFIDERA [Suspect]
     Indication: MULTIPLE SCLEROSIS
     Route: 048
     Dates: start: 20130506
  2. AMANTADINE HCL [Concomitant]
  3. ATENOLOL [Concomitant]
  4. ATORVASTATIN CALCIUM [Concomitant]
  5. BABY ASPIRIN [Concomitant]
  6. BACLOFEN [Concomitant]
  7. BUPROPION HCL [Concomitant]
  8. CALCIUM MAGNESIUM ZINC [Concomitant]
  9. FORTICAL [Concomitant]
  10. IRON [Concomitant]
  11. JANUVIA [Concomitant]
  12. LOSARTAN [Concomitant]
  13. POTASSIUM [Concomitant]
  14. METFORMIN HCL [Concomitant]
  15. MODAFINIL [Concomitant]
  16. NEXIUM [Concomitant]
  17. VITAMIN C [Concomitant]
  18. VITAMIN D3 [Concomitant]
  19. VITAMIN E [Concomitant]

REACTIONS (1)
  - Alopecia [Unknown]
